FAERS Safety Report 8229726-9 (Version None)
Quarter: 2012Q1

REPORT INFORMATION
  Report Type: 
  Country: None (occurrence: None)
  Receive Date: 20120322
  Receipt Date: 20120320
  Transmission Date: 20120608
  Serious: Yes (Hospitalization, Disabling)
  Sender: FDA-Public Use
  Company Number: US-MERCK-1108USA02812

PATIENT
  Age: 54 Year
  Sex: Female
  Weight: 63 kg

DRUGS (12)
  1. FOSAMAX [Suspect]
     Indication: OSTEOPOROSIS
     Route: 048
     Dates: start: 20000801, end: 20010201
  2. FOSAMAX [Suspect]
     Route: 048
     Dates: start: 20010201
  3. CHOLECALCIFEROL [Concomitant]
     Route: 065
     Dates: start: 20060101
  4. THYROLAR [Concomitant]
     Route: 065
     Dates: start: 19700101
  5. ALENDRONATE SODIUM [Suspect]
     Indication: OSTEOPENIA
     Route: 048
     Dates: start: 20080401, end: 20100301
  6. ESTRACE [Concomitant]
     Route: 065
     Dates: start: 19950101, end: 20110101
  7. MAXZIDE [Concomitant]
     Route: 065
     Dates: start: 19700101
  8. CALCIUM (UNSPECIFIED) [Concomitant]
     Route: 065
     Dates: start: 20000101
  9. FOSAMAX [Suspect]
     Route: 048
     Dates: start: 20010201
  10. FOSAMAX [Suspect]
     Indication: OSTEOPENIA
     Route: 048
     Dates: start: 20000801, end: 20010201
  11. POTASSIUM (UNSPECIFIED) [Concomitant]
     Route: 065
     Dates: start: 19970101
  12. PROVERA [Concomitant]
     Route: 065
     Dates: start: 19950101, end: 20110101

REACTIONS (32)
  - URINARY TRACT INFECTION [None]
  - FEMUR FRACTURE [None]
  - COLON ADENOMA [None]
  - LOW TURNOVER OSTEOPATHY [None]
  - PULMONARY FIBROSIS [None]
  - BLOOD POTASSIUM DECREASED [None]
  - UROSEPSIS [None]
  - RENAL CYST [None]
  - SCIATICA [None]
  - EPICONDYLITIS [None]
  - UTEROVAGINAL PROLAPSE [None]
  - COLONIC POLYP [None]
  - OSTEOARTHRITIS [None]
  - MELANOSIS COLI [None]
  - LUNG NEOPLASM [None]
  - TOOTH DISORDER [None]
  - DRUG HYPERSENSITIVITY [None]
  - BACK PAIN [None]
  - HYPERTONIC BLADDER [None]
  - MACULAR DEGENERATION [None]
  - HYPERSENSITIVITY [None]
  - ASTHMA [None]
  - BRONCHIECTASIS [None]
  - ROTATOR CUFF SYNDROME [None]
  - IRRITABLE BOWEL SYNDROME [None]
  - ONYCHOMYCOSIS [None]
  - NERVE ROOT LESION [None]
  - GASTROOESOPHAGEAL REFLUX DISEASE [None]
  - CONTUSION [None]
  - BONE LOSS [None]
  - GINGIVAL DISORDER [None]
  - INTERSTITIAL LUNG DISEASE [None]
